FAERS Safety Report 21992313 (Version 3)
Quarter: 2023Q2

REPORT INFORMATION
  Report Type: Spontaneous
  Country: US (occurrence: US)
  Receive Date: 20230215
  Receipt Date: 20230419
  Transmission Date: 20230722
  Serious: No
  Sender: FDA-Public Use
  Company Number: US-BoehringerIngelheim-2023-BI-218684

PATIENT
  Sex: Female

DRUGS (1)
  1. SPIRIVA HANDIHALER [Suspect]
     Active Substance: TIOTROPIUM BROMIDE MONOHYDRATE
     Indication: Chronic obstructive pulmonary disease
     Dosage: 2 PUFFS
     Dates: start: 2003

REACTIONS (3)
  - Intentional product use issue [Unknown]
  - Device defective [Unknown]
  - Product quality issue [Unknown]
